FAERS Safety Report 4396563-5 (Version None)
Quarter: 2004Q2

REPORT INFORMATION
  Report Type: 
  Country: None (occurrence: None)
  Receive Date: 20040524
  Receipt Date: 20040301
  Transmission Date: 20050107
  Serious: Yes (Hospitalization)
  Sender: FDA-Public Use
  Company Number: WSDF_00382

PATIENT
  Age: 52 Year
  Sex: Female
  Weight: 88.905 kg

DRUGS (2)
  1. WINRHO SDF [Suspect]
     Indication: IDIOPATHIC THROMBOCYTOPENIC PURPURA
     Dosage: 75 MCG/KG ONCE IV
     Route: 042
     Dates: start: 20040225, end: 20040225
  2. PREDNISONE [Concomitant]

REACTIONS (4)
  - CHILLS [None]
  - HAEMOLYTIC ANAEMIA [None]
  - INFLUENZA LIKE ILLNESS [None]
  - PYREXIA [None]
